FAERS Safety Report 11839666 (Version 4)
Quarter: 2016Q1

REPORT INFORMATION
  Report Type: Spontaneous
  Country: US (occurrence: US)
  Receive Date: 20151216
  Receipt Date: 20160311
  Transmission Date: 20160525
  Serious: Yes (Hospitalization)
  Sender: FDA-Public Use
  Company Number: US-PFIZER INC-2015396258

PATIENT
  Age: 71 Year
  Sex: Male
  Weight: 117.91 kg

DRUGS (26)
  1. VANOS [Concomitant]
     Active Substance: FLUOCINONIDE
     Dosage: 0.1 %, UNK
     Route: 061
  2. FLEXERIL [Concomitant]
     Active Substance: CYCLOBENZAPRINE HYDROCHLORIDE
     Dosage: 10 MG, UNK
  3. SUTENT [Suspect]
     Active Substance: SUNITINIB MALATE
     Dosage: 50 MG, DAILY
     Route: 048
     Dates: start: 201509
  4. CYCLOBENZAPRINE HCL [Concomitant]
     Active Substance: CYCLOBENZAPRINE HYDROCHLORIDE
     Dosage: 10 MG, AS NEEDED (TAKE 1 PO BID PRN)
     Route: 048
  5. FERROUS SULFATE [Concomitant]
     Active Substance: FERROUS SULFATE\FERROUS SULFATE, DRIED
     Dosage: 325 MG, DAILY
     Route: 048
     Dates: start: 20150615
  6. AMOXICILLIN AND CLAVULANATE POTASSIUM [Concomitant]
     Active Substance: AMOXICILLIN\CLAVULANATE POTASSIUM
     Dosage: UNK, 2X/DAY
     Route: 048
  7. VITAMIN D3 [Suspect]
     Active Substance: CHOLECALCIFEROL
     Dosage: UNK(VITAMIN D3 1000)
  8. FLOMAX [Concomitant]
     Active Substance: TAMSULOSIN HYDROCHLORIDE
     Dosage: 0.4 MG, DAILY
     Route: 048
  9. INDOMETHACIN. [Concomitant]
     Active Substance: INDOMETHACIN
     Route: 048
  10. VALTREX [Concomitant]
     Active Substance: VALACYCLOVIR HYDROCHLORIDE
     Dosage: 1000 MG, 3X/DAY
     Route: 048
  11. ZOLPIDEM TARTRATE. [Concomitant]
     Active Substance: ZOLPIDEM TARTRATE
     Indication: INSOMNIA
     Dosage: 10 MG, AS NEEDED (TAKE ONE TABLET BY MOUTH ONCE DAILY AT BEDTIME AS NEEDED FOR SLEEP)
     Route: 048
  12. SUTENT [Suspect]
     Active Substance: SUNITINIB MALATE
     Dosage: 37.5 MG, CYCLIC (4 WEEKS ON AND 2WEEKS OFF)
     Route: 048
     Dates: start: 20150309
  13. SUTENT [Suspect]
     Active Substance: SUNITINIB MALATE
     Dosage: 37.5 MG, (2 WEEKS ON 1 WEEKS OFF)
     Dates: start: 20150926
  14. HYDROCODONE- ACETAMINOPHEN [Concomitant]
     Indication: PAIN
     Dosage: 1 DF, AS NEEDED (HYDROCODONE 5MG-ACETAMINOPHEN 325MG (TAKE 1 PO Q4H PRN PAIN))
     Route: 048
  15. VITAMIN D [Concomitant]
     Active Substance: CHOLECALCIFEROL
     Route: 048
  16. ZINC WITH VITAMIN C [Concomitant]
     Route: 048
  17. OXYCODONE/ACETAMINOPHEN [Suspect]
     Active Substance: ACETAMINOPHEN\OXYCODONE HYDROCHLORIDE
     Dosage: UNK(7.5-3.2)
  18. SUTENT [Suspect]
     Active Substance: SUNITINIB MALATE
     Dosage: UNK, 1X/DAY (37.5 ONCE DAILY)
     Dates: start: 20151014
  19. SUTENT [Suspect]
     Active Substance: SUNITINIB MALATE
     Dosage: 37.5 MG, CYCLIC (2 WEEKS ON AND 1 WEEKS OFF)
     Route: 048
     Dates: start: 201503
  20. FENTANYL. [Concomitant]
     Active Substance: FENTANYL
     Dosage: 10 MG, UNK
  21. FENTANYL. [Concomitant]
     Active Substance: FENTANYL
     Dosage: UNK UNK, 3X/DAY (TAKE 1 PATCH(ES) TOPICAL Q72H AS DIRECTED)
     Route: 061
  22. ZINC [Concomitant]
     Active Substance: ZINC\ZINC CHLORIDE
     Dosage: 10 MG, UNK
  23. SUTENT [Suspect]
     Active Substance: SUNITINIB MALATE
     Indication: RENAL CANCER METASTATIC
     Dosage: 50 MG, CYCLIC (2WEEKS ON/1 OFF)
     Route: 048
     Dates: start: 20150309
  24. ALLOPURINOL. [Concomitant]
     Active Substance: ALLOPURINOL
     Dosage: 300 MG, DAILY
     Route: 048
  25. ZOLPIDEM [Concomitant]
     Active Substance: ZOLPIDEM\ZOLPIDEM TARTRATE
     Dosage: 10 MG, UNK
  26. NYSTATIN. [Concomitant]
     Active Substance: NYSTATIN
     Dosage: 5 ML, 3X/DAY (100000/ML SUSPENSION, ORAL TAKE 5 ML SWISH AND SWALLOW TID)
     Route: 048

REACTIONS (37)
  - Decreased appetite [Recovered/Resolved]
  - Dyspnoea [Unknown]
  - Gout [Unknown]
  - Fatigue [Recovered/Resolved]
  - Ear discomfort [Recovered/Resolved]
  - Nausea [Unknown]
  - Proctalgia [Unknown]
  - Nasal congestion [Unknown]
  - Cough [Unknown]
  - Dehydration [Unknown]
  - Throat irritation [Recovered/Resolved]
  - Hypersomnia [Unknown]
  - Weight decreased [Unknown]
  - Skin discolouration [Recovered/Resolved]
  - Back pain [Unknown]
  - Tooth extraction [Unknown]
  - Memory impairment [Unknown]
  - Confusional state [Unknown]
  - Mucosal inflammation [Unknown]
  - Stomatitis [Recovering/Resolving]
  - Pain [Unknown]
  - Insomnia [Unknown]
  - Odynophagia [Unknown]
  - Vomiting [Unknown]
  - Wound haemorrhage [Unknown]
  - Dental discomfort [Unknown]
  - Dysphagia [Recovered/Resolved]
  - Asthenia [Unknown]
  - Dizziness [Unknown]
  - Liver function test increased [Recovered/Resolved]
  - Hypoacusis [Unknown]
  - Central obesity [Unknown]
  - Malaise [Recovering/Resolving]
  - Oropharyngeal pain [Unknown]
  - Dyspepsia [Unknown]
  - Pneumonia [Unknown]
  - Pyrexia [Unknown]

NARRATIVE: CASE EVENT DATE: 20150729
